FAERS Safety Report 21525073 (Version 1)
Quarter: 2022Q4

REPORT INFORMATION
  Report Type: Report from Study
  Country: US (occurrence: US)
  Receive Date: 20221030
  Receipt Date: 20221030
  Transmission Date: 20230112
  Serious: No
  Sender: FDA-Public Use
  Company Number: US-ABBVIE-4176396

PATIENT
  Sex: Female

DRUGS (19)
  1. IMBRUVICA [Suspect]
     Active Substance: IBRUTINIB
     Indication: Chronic lymphocytic leukaemia
     Route: 048
     Dates: start: 20220829
  2. MELATONIN [Concomitant]
     Active Substance: MELATONIN
     Indication: Product used for unknown indication
  3. 50 mg Metoprolol succinate (Metoprolol succinate) [Concomitant]
     Indication: Product used for unknown indication
  4. 100 mg Coenzyme Q10 (Ubidecarenone) [Concomitant]
     Indication: Product used for unknown indication
  5. Nyquil severe cold + flu (Dextromethorphan hydrobromide;Doxylamine ... [Concomitant]
     Indication: Product used for unknown indication
  6. 600 mg Red yeast rice (Monascus purpureus) [Concomitant]
     Indication: Product used for unknown indication
  7. MAGNESIUM [Concomitant]
     Active Substance: MAGNESIUM
     Indication: Product used for unknown indication
  8. 25 mg Topiramate (Topiramate) [Concomitant]
     Indication: Product used for unknown indication
  9. POTASSIUM [Concomitant]
     Active Substance: POTASSIUM
     Indication: Product used for unknown indication
  10. 5 mg Amlodipine besylate (Amlodipine besilate) [Concomitant]
     Indication: Product used for unknown indication
  11. 100 mg Losartan potassium (Losartan potassium) [Concomitant]
     Indication: Product used for unknown indication
  12. Children^s delsym cough (Dextromethorphan polistirex) [Concomitant]
     Indication: Product used for unknown indication
  13. Flonase allergy relief (Fluticasone propionate) [Concomitant]
     Indication: Product used for unknown indication
     Dosage: SUSPENSION 50 MCG
  14. 300 mg Allopurinol (Allopurinol) [Concomitant]
     Indication: Product used for unknown indication
  15. VITAMIN D2 [Concomitant]
     Active Substance: ERGOCALCIFEROL
     Indication: Product used for unknown indication
     Dosage: 50 MCG
  16. Bacitracin zinc (Bacitracin zinc) [Concomitant]
     Indication: Product used for unknown indication
  17. Ricola (Herbal nos) [Concomitant]
     Indication: Product used for unknown indication
  18. VITAMIN C [Concomitant]
     Active Substance: ASCORBIC ACID
     Indication: Product used for unknown indication
  19. 100 mg Losartan potassium, tablets (Losartan potassium) [Concomitant]
     Indication: Product used for unknown indication

REACTIONS (2)
  - Dyspepsia [Not Recovered/Not Resolved]
  - Constipation [Not Recovered/Not Resolved]

NARRATIVE: CASE EVENT DATE: 20220101
